FAERS Safety Report 20038664 (Version 2)
Quarter: 2021Q4

REPORT INFORMATION
  Report Type: Report from Study
  Country: US (occurrence: US)
  Receive Date: 20211105
  Receipt Date: 20211123
  Transmission Date: 20220304
  Serious: Yes (Other)
  Sender: FDA-Public Use
  Company Number: US-BIOGEN-2021BI01063470

PATIENT
  Age: 60 Year
  Sex: Female

DRUGS (28)
  1. TYSABRI [Suspect]
     Active Substance: NATALIZUMAB
     Indication: Multiple sclerosis
     Dosage: INFUSED OVER 1 HOUR
     Route: 042
     Dates: start: 20121127
  2. TYSABRI [Suspect]
     Active Substance: NATALIZUMAB
     Route: 065
     Dates: start: 201701
  3. TYSABRI [Suspect]
     Active Substance: NATALIZUMAB
     Dosage: INFUSED OVER 1 HOUR
     Route: 042
     Dates: start: 20211020
  4. ACETAMINOPHEN [Concomitant]
     Active Substance: ACETAMINOPHEN
     Indication: Arthritis
     Dosage: 2 TABS PO Q6 HOURS PRN
     Route: 048
     Dates: start: 20211014
  5. ADHC Semglee U-100 [Concomitant]
     Indication: Product used for unknown indication
     Dosage: INJECT 40 UNITS SQ MID-DAY WHEN AT INNOVAGE CENTER FOR DIABETES.
     Route: 058
     Dates: start: 20211014
  6. Ayr Saline 0.65 % nasal drops [Concomitant]
     Indication: Epistaxis
     Dosage: 1 SPRAY INTO NASAL PASSAGES EVERY HOUR WHILE AWAKE
     Route: 050
     Dates: start: 20211014
  7. BACLOFEN [Concomitant]
     Active Substance: BACLOFEN
     Indication: Muscle spasms
     Dosage: TAKE 1 TABLET (10 MG) BY ORAL ROUTE EVERY MORNING
     Route: 048
     Dates: start: 20211014
  8. BACLOFEN [Concomitant]
     Active Substance: BACLOFEN
     Dosage: TAKE 1 TABLET (20 MG) BY ORAL ROUTE AT BEDTIME
     Route: 048
     Dates: start: 20211014
  9. BUSPIRONE [Concomitant]
     Active Substance: BUSPIRONE HYDROCHLORIDE
     Indication: Anxiety
     Dosage: TABLET BY ORAL ROUTE 2 TIMES PER DAY FOR ANXIETY - LOWERED?11.6.17
     Route: 048
     Dates: start: 20211014
  10. CALCIUM ANTACID [Concomitant]
     Active Substance: CALCIUM CARBONATE
     Indication: Abdominal discomfort
     Dosage: 2 TABS PO EVERY 2 HOURS PRN STOMACH UPSET NTE 12/DAY.
     Route: 048
     Dates: start: 20211014
  11. CHOLECALCIFEROL [Concomitant]
     Active Substance: CHOLECALCIFEROL
     Indication: Vitamin D deficiency
     Dosage: 1 CAP PO WEEKLY
     Route: 048
     Dates: start: 20211014
  12. clonidine HCI [Concomitant]
     Indication: Product used for unknown indication
     Dosage: 1 TABLET PO Q8H PRN SBP LESS THAN 180
     Route: 048
     Dates: start: 20211014
  13. DULOXETINE [Concomitant]
     Active Substance: DULOXETINE
     Indication: Anxiety
     Dosage: 3 CAPSULES (90 MG) BY ORAL ROUTE ONCE DAILY
     Route: 048
     Dates: start: 20211014
  14. FAMOTIDINE [Concomitant]
     Active Substance: FAMOTIDINE
     Indication: Gastrooesophageal reflux disease
     Dosage: 1 TABLET BY ORAL ROUTE AT BEDTIME
     Route: 048
     Dates: start: 20211014
  15. FERROUS GLUCONATE [Concomitant]
     Active Substance: FERROUS GLUCONATE
     Indication: Product used for unknown indication
     Dosage: 1 TAB PO QOD
     Route: 048
     Dates: start: 20211014
  16. Fiber-Tabs [Concomitant]
     Indication: Diarrhoea
     Dosage: 1 TAB PO BID
     Route: 048
     Dates: start: 20211014
  17. FUROSEMIDE [Concomitant]
     Active Substance: FUROSEMIDE
     Indication: Oedema
     Dosage: 1 TABLET BY ORAL ROUTE EVERY AM
     Route: 048
     Dates: start: 20211014
  18. HYDROCHLOROTHIAZIDE [Concomitant]
     Active Substance: HYDROCHLOROTHIAZIDE
     Indication: Hypertension
     Dosage: 1 TABLET BY MOUTH ONCE DAILY
     Route: 048
     Dates: start: 20211014
  19. LISINOPRIL [Concomitant]
     Active Substance: LISINOPRIL
     Indication: Hypertension
     Dosage: 1 TABLET PO DAILY
     Route: 048
     Dates: start: 20211014
  20. LOPERAMIDE [Concomitant]
     Active Substance: LOPERAMIDE
     Indication: Diarrhoea
     Dosage: CAPSULE AFTER EACH UNFORMED STOOL (MAX 8 CAPS/DAY)
     Route: 048
     Dates: start: 20211014
  21. mupirocin 2% topical ointment [Concomitant]
     Indication: Epistaxis
     Dosage: APPLY A SMALL AMOUNT TO NOSTRILS 2X DAY
     Route: 061
     Dates: start: 20211014
  22. NOVOLIN R [Concomitant]
     Active Substance: INSULIN HUMAN
     Indication: Product used for unknown indication
     Dosage: INJ SQ QAM PER SS: HOLD LESS THAN 100; 101-200=8U; 201-300=10U;?301-400=12U; MORE THAN 400=14U.
     Route: 058
     Dates: start: 20211014
  23. NYSTATIN [Concomitant]
     Active Substance: NYSTATIN
     Indication: Rash
     Dosage: 100,000 UNIT/GRAM TOPICAL POWDER - APPLY POWDER TO THE AFFECTED AREAS TOPICALLY 3X DAY PRN
     Route: 061
     Dates: start: 20211014
  24. OXYMETAZOLINE [Concomitant]
     Active Substance: OXYMETAZOLINE
     Indication: Epistaxis
     Dosage: 0.05 PERCENT NASAL SPRAY,NON-AEROSOL 2 SPRAYS IN EACH NOSTRIL QLO MINUTES X 3 DOSES PRN
     Route: 045
     Dates: start: 20211014
  25. PROPRANOLOL [Concomitant]
     Active Substance: PROPRANOLOL HYDROCHLORIDE
     Indication: Tremor
     Dosage: 1 TAB PO BID
     Route: 048
     Dates: start: 20211014
  26. ROSUVASTATIN [Concomitant]
     Active Substance: ROSUVASTATIN
     Indication: Cardiovascular disorder
     Dosage: 1 TABLET BY ORAL ROUTE QHS
     Route: 048
     Dates: start: 20211014
  27. SPIRONOLACTONE [Concomitant]
     Active Substance: SPIRONOLACTONE
     Indication: Hypertension
     Dosage: 1 TAB PO QAM
     Route: 048
     Dates: start: 20211014
  28. zinc oxide 20% topical ointment [Concomitant]
     Indication: Product used for unknown indication
     Dosage: USE TOPICALLY
     Route: 061
     Dates: start: 20211014

REACTIONS (5)
  - Type 2 diabetes mellitus [Unknown]
  - Diabetic neuropathy [Unknown]
  - Chronic kidney disease [Unknown]
  - Epistaxis [Unknown]
  - Diarrhoea [Unknown]

NARRATIVE: CASE EVENT DATE: 20160912
